FAERS Safety Report 8380992-9 (Version None)
Quarter: 2012Q2

REPORT INFORMATION
  Report Type: 
  Country: None (occurrence: None)
  Receive Date: 20120523
  Receipt Date: 20120517
  Transmission Date: 20120825
  Serious: Yes (Hospitalization)
  Sender: FDA-Public Use
  Company Number: US-BAYER-2012-009695

PATIENT
  Age: 20 Year
  Sex: Female
  Weight: 58.957 kg

DRUGS (22)
  1. ZETIA [Concomitant]
     Dosage: 10 MG, QD
  2. MAGNESIUM HYDROXIDE TAB [Concomitant]
  3. YASMIN [Suspect]
     Indication: CONTRACEPTION
     Dosage: UNK
     Dates: start: 20030501, end: 20041201
  4. MIDODRINE HYDROCHLORIDE [Concomitant]
     Indication: HYPERTENSION
     Dosage: 2.5 MG, 3 TABLETS QD
  5. GAVISCON [Concomitant]
  6. ALLEGRA [Concomitant]
     Dosage: 180 MG, UNK
  7. YASMIN [Suspect]
     Indication: MENSTRUAL CYCLE MANAGEMENT
  8. NSAID'S [Concomitant]
     Dosage: UNK
     Dates: start: 20020101
  9. PROTAMINE SULFATE [Concomitant]
     Indication: CARDIAC DISORDER
  10. DIFLUCAN [Concomitant]
     Dosage: 150 MG, UNK
  11. YASMIN [Suspect]
     Indication: PREMENSTRUAL SYNDROME
  12. LIPITOR [Concomitant]
     Indication: BLOOD CHOLESTEROL INCREASED
     Dosage: UNK
     Dates: start: 20010101
  13. PREVACID [Concomitant]
     Dosage: 30 MG, DAILY
  14. HYOSCYAMINE [Concomitant]
     Dosage: 0.125 MG, UNK
     Route: 060
  15. ATENOLOL [Concomitant]
     Indication: BLOOD PRESSURE MANAGEMENT
     Dosage: 25 MG, QD
     Dates: start: 20010101
  16. ATENOLOL [Concomitant]
     Indication: CARDIAC DISORDER
  17. LEVSIN PB [Concomitant]
  18. METRONIDAZOLE [Concomitant]
     Dosage: 500 MG, BID
  19. YASMIN [Suspect]
     Indication: ACNE
  20. LORTAB [Concomitant]
  21. ULTRACET [Concomitant]
  22. NIASPAN [Concomitant]
     Dosage: 500 MG, HS

REACTIONS (7)
  - ANHEDONIA [None]
  - INJURY [None]
  - GALLBLADDER DISORDER [None]
  - ANXIETY [None]
  - CHOLECYSTITIS ACUTE [None]
  - GENERAL PHYSICAL HEALTH DETERIORATION [None]
  - PAIN [None]
